FAERS Safety Report 5449267-1 (Version None)
Quarter: 2007Q3

REPORT INFORMATION
  Report Type: 
  Country: None (occurrence: None)
  Receive Date: 20070907
  Receipt Date: 20070822
  Transmission Date: 20080115
  Serious: Yes (Hospitalization)
  Sender: FDA-Public Use
  Company Number: 8024814

PATIENT
  Age: 45 Year
  Sex: Female

DRUGS (3)
  1. XYZAL [Suspect]
     Indication: FOOD ALLERGY
     Dates: start: 20031020, end: 20040428
  2. ZYRTEC [Suspect]
  3. ZYRTEC [Suspect]

REACTIONS (6)
  - ALTERED STATE OF CONSCIOUSNESS [None]
  - ANXIETY [None]
  - DYSGEUSIA [None]
  - EATING DISORDER [None]
  - PANIC REACTION [None]
  - WEIGHT DECREASED [None]
